FAERS Safety Report 6783461-2 (Version None)
Quarter: 2010Q2

REPORT INFORMATION
  Report Type: 
  Country: None (occurrence: None)
  Receive Date: 20100622
  Receipt Date: 20100614
  Transmission Date: 20101027
  Serious: No
  Sender: FDA-Public Use
  Company Number: BR-ABBOTT-09P-020-0611547-00

PATIENT
  Sex: Female
  Weight: 42 kg

DRUGS (9)
  1. HUMIRA [Suspect]
     Indication: RHEUMATOID ARTHRITIS
     Route: 058
     Dates: start: 20080601
  2. HUMIRA [Suspect]
     Route: 058
     Dates: end: 20090101
  3. HUMIRA [Suspect]
     Route: 058
     Dates: start: 20090101, end: 20090801
  4. HUMIRA [Suspect]
     Route: 058
  5. CALCIUM CARBONATE/VITAMIN [Concomitant]
     Indication: ARTICULAR CALCIFICATION
     Route: 048
  6. ALENDRONATE SODIUM [Concomitant]
     Indication: DRUG USE FOR UNKNOWN INDICATION
     Route: 048
  7. PREDNISONE [Concomitant]
     Indication: DRUG USE FOR UNKNOWN INDICATION
     Route: 048
  8. FOLIC ACID [Concomitant]
     Indication: DRUG USE FOR UNKNOWN INDICATION
     Route: 048
  9. FLUOXETINE [Concomitant]
     Indication: DEPRESSION

REACTIONS (6)
  - CRYING [None]
  - DEPRESSED MOOD [None]
  - INJECTION SITE ERYTHEMA [None]
  - INJECTION SITE PAIN [None]
  - INJECTION SITE SWELLING [None]
  - WEIGHT DECREASED [None]
